FAERS Safety Report 23291783 (Version 2)
Quarter: 2024Q3

REPORT INFORMATION
  Report Type: Spontaneous
  Country: JP (occurrence: JP)
  Receive Date: 20231213
  Receipt Date: 20240802
  Transmission Date: 20241017
  Serious: Yes (Other)
  Sender: AMGEN
  Company Number: JP-AMGEN-JPNSP2023218688

PATIENT
  Sex: Female

DRUGS (2)
  1. OTEZLA [Suspect]
     Active Substance: APREMILAST
     Indication: Psoriasis
     Dosage: UNK UNK, BID
     Route: 048
  2. OTEZLA [Suspect]
     Active Substance: APREMILAST
     Dosage: UNK UNK, QD
     Route: 048

REACTIONS (1)
  - Renal impairment [Recovered/Resolved]
